FAERS Safety Report 14168773 (Version 1)
Quarter: 2017Q4

REPORT INFORMATION
  Report Type: Spontaneous
  Country: US (occurrence: US)
  Receive Date: 20171107
  Receipt Date: 20171107
  Transmission Date: 20180321
  Serious: Yes (Other)
  Sender: FDA-Public Use
  Company Number: US-SA-2017SA215402

PATIENT
  Age: 74 Year
  Sex: Female

DRUGS (1)
  1. BISACODYL. [Suspect]
     Active Substance: BISACODYL
     Indication: DEFAECATION DISORDER
     Route: 054
     Dates: start: 20171027

REACTIONS (1)
  - Haemorrhage [Unknown]

NARRATIVE: CASE EVENT DATE: 20171028
